FAERS Safety Report 4746678-4 (Version None)
Quarter: 2005Q3

REPORT INFORMATION
  Report Type: 
  Country: None (occurrence: None)
  Receive Date: 20050817
  Receipt Date: 20050811
  Transmission Date: 20060218
  Serious: Yes (Hospitalization)
  Sender: FDA-Public Use
  Company Number: PHNU2005DE02851

PATIENT
  Sex: Male

DRUGS (2)
  1. OPIAT [Concomitant]
     Dates: start: 20050101, end: 20050101
  2. BENAZEPRIL HCL [Suspect]
     Dates: end: 20050601

REACTIONS (1)
  - HICCUPS [None]
